FAERS Safety Report 25033352 (Version 2)
Quarter: 2025Q1

REPORT INFORMATION
  Report Type: Spontaneous
  Country: US (occurrence: US)
  Receive Date: 20250303
  Receipt Date: 20250312
  Transmission Date: 20250408
  Serious: No
  Sender: PRASCO
  Company Number: US-Prasco Laboratories-PRAS20250090

PATIENT
  Age: 71 Year
  Sex: Female

DRUGS (4)
  1. ESTRADIOL [Suspect]
     Active Substance: ESTRADIOL
     Indication: Hormone level abnormal
     Route: 067
  2. ESTRADIOL [Suspect]
     Active Substance: ESTRADIOL
     Indication: Urinary tract disorder prophylaxis
  3. FAMOTIDINE [Concomitant]
     Active Substance: FAMOTIDINE
     Indication: Product used for unknown indication
     Route: 065
  4. ATENOLOL [Concomitant]
     Active Substance: ATENOLOL
     Indication: Product used for unknown indication
     Route: 065

REACTIONS (4)
  - Vulval haemorrhage [Recovered/Resolved]
  - Vulvovaginal burning sensation [Recovered/Resolved]
  - Feeling hot [Recovered/Resolved]
  - Off label use [None]
